FAERS Safety Report 19224208 (Version 5)
Quarter: 2021Q2

REPORT INFORMATION
  Report Type: Report from Study
  Country: PL (occurrence: PL)
  Receive Date: 20210506
  Receipt Date: 20210624
  Transmission Date: 20210717
  Serious: Yes (Hospitalization)
  Sender: FDA-Public Use
  Company Number: PL-GLAXOSMITHKLINE-PL2021GSK094504

PATIENT
  Age: 66 Year
  Sex: Female
  Weight: 51 kg

DRUGS (16)
  1. BEVACIZUMAB. [Suspect]
     Active Substance: BEVACIZUMAB
     Indication: OVARIAN CANCER
     Route: 042
  2. DOSTARLIMAB [Suspect]
     Active Substance: DOSTARLIMAB
     Dosage: 1000 MG
     Dates: start: 20210317, end: 20210317
  3. DOSTARLIMAB [Suspect]
     Active Substance: DOSTARLIMAB
     Dosage: UNK
     Dates: start: 20210428, end: 20210428
  4. DOCETAXEL. [Concomitant]
     Active Substance: DOCETAXEL
     Indication: OVARIAN CANCER
     Route: 042
  5. CARBOPLATIN. [Suspect]
     Active Substance: CARBOPLATIN
     Indication: OVARIAN CANCER
     Dosage: 5 AUC
     Route: 042
     Dates: start: 20201030, end: 20201030
  6. NIRAPARIB [Suspect]
     Active Substance: NIRAPARIB
     Dosage: 100 MG
     Dates: end: 20210524
  7. DOSTARLIMAB [Suspect]
     Active Substance: DOSTARLIMAB
     Indication: OVARIAN CANCER
     Dosage: 500 MG
     Dates: start: 20201123, end: 20201123
  8. PACLITAXEL. [Suspect]
     Active Substance: PACLITAXEL
     Indication: OVARIAN CANCER
     Dosage: 259 MG
     Route: 042
     Dates: start: 20201030, end: 20201030
  9. CISPLATIN. [Concomitant]
     Active Substance: CISPLATIN
     Indication: OVARIAN CANCER
     Route: 042
  10. NIRAPARIB [Suspect]
     Active Substance: NIRAPARIB
     Dosage: UNK
     Dates: end: 20210525
  11. PACLITAXEL. [Suspect]
     Active Substance: PACLITAXEL
     Dosage: 260 MG
     Route: 042
     Dates: start: 20210216, end: 20210216
  12. EUTHYROX [Concomitant]
     Active Substance: LEVOTHYROXINE SODIUM
     Indication: HYPOTHYROIDISM
     Dosage: 25 UG, QD
     Route: 048
     Dates: start: 20210524
  13. NIRAPARIB [Suspect]
     Active Substance: NIRAPARIB
     Indication: OVARIAN CANCER
     Dosage: 200 MG
     Dates: end: 20210427
  14. NIRAPARIB [Suspect]
     Active Substance: NIRAPARIB
     Dosage: UNK
     Dates: end: 20210428
  15. CARBOPLATIN. [Suspect]
     Active Substance: CARBOPLATIN
     Dosage: 5 AUC
     Route: 042
     Dates: start: 20210216, end: 20210216
  16. PRESTARIUM [Concomitant]
     Active Substance: PERINDOPRIL
     Indication: HYPERTENSION
     Dosage: 5 MG, QD
     Route: 048
     Dates: start: 20210420

REACTIONS (2)
  - Device related sepsis [Recovered/Resolved]
  - Hepatitis [Recovering/Resolving]

NARRATIVE: CASE EVENT DATE: 20210428
